FAERS Safety Report 5877432-8 (Version None)
Quarter: 2008Q3

REPORT INFORMATION
  Report Type: 
  Country: None (occurrence: None)
  Receive Date: 20080910
  Receipt Date: 20080902
  Transmission Date: 20090109
  Serious: Yes (Hospitalization)
  Sender: FDA-Public Use
  Company Number: DE-WYE-G02100208

PATIENT
  Sex: Male

DRUGS (6)
  1. ENBREL [Suspect]
     Indication: PSORIASIS
     Dosage: 50MG
     Route: 058
     Dates: start: 20080201, end: 20080711
  2. SIMVASTATIN [Suspect]
     Dosage: UNKNOWN
     Route: 048
     Dates: end: 20080101
  3. MICARDIS [Concomitant]
  4. SPALT LIQUA [Suspect]
     Dosage: UNKNOWN
     Route: 065
     Dates: end: 20080101
  5. TRIAMPUR COMPOSITUM [Concomitant]
  6. CLONISTADA [Concomitant]

REACTIONS (1)
  - HEPATITIS TOXIC [None]
